FAERS Safety Report 17584786 (Version 1)
Quarter: 2020Q1

REPORT INFORMATION
  Report Type: Spontaneous
  Country: SE (occurrence: SE)
  Receive Date: 20200326
  Receipt Date: 20200326
  Transmission Date: 20200409
  Serious: Yes (Hospitalization)
  Sender: FDA-Public Use
  Company Number: SE-STRIDES ARCOLAB LIMITED-2020SP003965

PATIENT
  Age: 14 Year
  Sex: Female

DRUGS (3)
  1. CANDESARTAN. [Suspect]
     Active Substance: CANDESARTAN
     Indication: PRODUCT USED FOR UNKNOWN INDICATION
     Dosage: UNK, TOTAL
     Route: 048
  2. AMLODIPINE [Suspect]
     Active Substance: AMLODIPINE BESYLATE
     Indication: PRODUCT USED FOR UNKNOWN INDICATION
     Dosage: 350 MILLIGRAM, TOTAL
     Route: 048
  3. PROPRANOLOL [Suspect]
     Active Substance: PROPRANOLOL HYDROCHLORIDE
     Indication: PRODUCT USED FOR UNKNOWN INDICATION
     Dosage: UNK, TOTAL
     Route: 048

REACTIONS (5)
  - Bradycardia [Recovered/Resolved]
  - Non-cardiogenic pulmonary oedema [Recovered/Resolved]
  - Hypotension [Recovered/Resolved]
  - Toxicity to various agents [Unknown]
  - Overdose [Unknown]
